FAERS Safety Report 17281394 (Version 1)
Quarter: 2020Q1

REPORT INFORMATION
  Report Type: Spontaneous
  Country: US (occurrence: US)
  Receive Date: 20200117
  Receipt Date: 20200117
  Transmission Date: 20200409
  Serious: No
  Sender: FDA-Public Use
  Company Number: US-AUROBINDO-AUR-APL-2019-015609

PATIENT
  Sex: Female

DRUGS (4)
  1. DEXTROAMPHET SACCHARAT, AMPHET ASPARTATE, DEXTROAMPHET SULFATE AND AMPHET SULFAT [Suspect]
     Active Substance: AMPHETAMINE ASPARTATE\AMPHETAMINE SULFATE\DEXTROAMPHETAMINE SACCHARATE\DEXTROAMPHETAMINE SULFATE
     Dosage: UNK, DAY 2 AT 9 AM 15 MG (3 TABLETS), AT 10 AM 15MG (3 TABLETS), AT 11 AM 15MG (3 TABLETS)
     Dates: start: 201902
  2. DEXTROAMPHET SACCHARAT, AMPHET ASPARTATE, DEXTROAMPHET SULFATE AND AMPHET SULFAT [Suspect]
     Active Substance: AMPHETAMINE ASPARTATE\AMPHETAMINE SULFATE\DEXTROAMPHETAMINE SACCHARATE\DEXTROAMPHETAMINE SULFATE
     Dosage: UNK, DAY 3 AT 9 AM 20 MG (4 TABLETS), AT 10 AM 20MG (4 TABLETS), AT 11 AM 20 MG (4 TABLETS)
     Dates: start: 201902
  3. DEXTROAMPHET SACCHARAT, AMPHET ASPARTATE, DEXTROAMPHET SULFATE AND AMPHET SULFAT [Suspect]
     Active Substance: AMPHETAMINE ASPARTATE\AMPHETAMINE SULFATE\DEXTROAMPHETAMINE SACCHARATE\DEXTROAMPHETAMINE SULFATE
     Dosage: UNK, DAY 4 AT 9 AM 30 MG (6 TABLETS), AT 10 AM 30MG (6 TABLETS), AT 11 AM 30 MG (6 TABLETS)
     Dates: start: 201902
  4. DEXTROAMPHET SACCHARAT, AMPHET ASPARTATE, DEXTROAMPHET SULFATE AND AMPHET SULFAT [Suspect]
     Active Substance: AMPHETAMINE ASPARTATE\AMPHETAMINE SULFATE\DEXTROAMPHETAMINE SACCHARATE\DEXTROAMPHETAMINE SULFATE
     Indication: PRODUCT USED FOR UNKNOWN INDICATION
     Dosage: UNK, DAY 1 AT 9 AM 5MG, AT 10 AM 5MG, AT 11 AM 5MG, AT 12 NOON 5 MG
     Dates: start: 201902

REACTIONS (2)
  - Heart rate increased [Unknown]
  - Blood pressure increased [Unknown]
